FAERS Safety Report 4696714-9 (Version None)
Quarter: 2005Q2

REPORT INFORMATION
  Report Type: 
  Country: None (occurrence: None)
  Receive Date: 20050620
  Receipt Date: 20050609
  Transmission Date: 20051028
  Serious: Yes (Death, Hospitalization)
  Sender: FDA-Public Use
  Company Number: 2005-05-0912

PATIENT
  Age: 47 Year
  Sex: Female

DRUGS (7)
  1. TEMODAR (TEMOLOMIDE) CAPSULES [Suspect]
     Indication: GLIOBLASTOMA MULTIFORME
     Dosage: 140 MG QD ORAL
     Route: 048
     Dates: start: 20050318, end: 20050502
  2. RADIATION THERAPY [Concomitant]
  3. DIOVAN [Concomitant]
  4. DITROPAN [Concomitant]
  5. DECADRON [Concomitant]
  6. DARVOCET-N 100 [Concomitant]
  7. PEPCID [Concomitant]

REACTIONS (6)
  - BLOOD POTASSIUM DECREASED [None]
  - BONE MARROW DEPRESSION [None]
  - HYPOTENSION [None]
  - PAIN [None]
  - PANCYTOPENIA [None]
  - PYREXIA [None]
